FAERS Safety Report 6992246-3 (Version None)
Quarter: 2010Q3

REPORT INFORMATION
  Report Type: 
  Country: None (occurrence: None)
  Receive Date: 20100917
  Receipt Date: 20100914
  Transmission Date: 20110219
  Serious: Yes (Death)
  Sender: FDA-Public Use
  Company Number: GB-BRISTOL-MYERS SQUIBB COMPANY-15215957

PATIENT
  Age: 29 Year
  Sex: Male
  Weight: 72 kg

DRUGS (4)
  1. SUSTIVA [Suspect]
     Dosage: INTERR ON OCT2005 RESTARTED ON FEB2009
     Dates: start: 20020901
  2. ATAZANAVIR [Suspect]
     Indication: HIV INFECTION
     Route: 048
     Dates: start: 20090201
  3. ATRIPLA [Suspect]
     Indication: HIV INFECTION
     Dates: start: 20090201
  4. RITONAVIR [Suspect]
     Indication: HIV INFECTION
     Dates: start: 20090201

REACTIONS (2)
  - COMPLETED SUICIDE [None]
  - NIGHTMARE [None]
